FAERS Safety Report 19207679 (Version 4)
Quarter: 2021Q2

REPORT INFORMATION
  Report Type: Report from Study
  Country: ES (occurrence: ES)
  Receive Date: 20210503
  Receipt Date: 20210630
  Transmission Date: 20210717
  Serious: Yes (Hospitalization, Other)
  Sender: FDA-Public Use
  Company Number: ES-AKCEA THERAPEUTICS, INC.-2021IS001320

PATIENT
  Age: 55 Year
  Sex: Male

DRUGS (8)
  1. ISSD (INTEGRATED SYRINGE SAFETY DEVICE) [Suspect]
     Active Substance: DEVICE
  2. GABAPENTIN. [Concomitant]
     Active Substance: GABAPENTIN
     Route: 065
  3. TEGSEDI [Suspect]
     Active Substance: INOTERSEN SODIUM
     Indication: HEREDITARY NEUROPATHIC AMYLOIDOSIS
     Route: 058
     Dates: start: 20200515, end: 20210419
  4. CITALOPRAM [Concomitant]
     Active Substance: CITALOPRAM HYDROBROMIDE
     Route: 065
  5. DIAZEPAM. [Concomitant]
     Active Substance: DIAZEPAM
  6. NEURONTIN [Concomitant]
     Active Substance: GABAPENTIN
  7. CIPRAM [Concomitant]
     Active Substance: CITALOPRAM HYDROBROMIDE
  8. TEGSEDI [Suspect]
     Active Substance: INOTERSEN SODIUM
     Route: 058

REACTIONS (11)
  - Thrombocytopenia [Recovered/Resolved]
  - Red blood cells urine positive [Unknown]
  - Complement factor C4 decreased [Unknown]
  - Blood creatinine abnormal [Unknown]
  - Petechiae [Recovered/Resolved]
  - Gingival bleeding [Recovered/Resolved]
  - Blood lactate dehydrogenase abnormal [Unknown]
  - Blood bilirubin abnormal [Unknown]
  - Purpura [Recovered/Resolved]
  - Blood urea abnormal [Unknown]
  - Complement factor C3 decreased [Unknown]

NARRATIVE: CASE EVENT DATE: 20210419
